FAERS Safety Report 8114225-5 (Version None)
Quarter: 2012Q1

REPORT INFORMATION
  Report Type: 
  Country: None (occurrence: None)
  Receive Date: 20120205
  Receipt Date: 20120127
  Transmission Date: 20120608
  Serious: Yes (Hospitalization)
  Sender: FDA-Public Use
  Company Number: FR-BRISTOL-MYERS SQUIBB COMPANY-16374795

PATIENT
  Age: 65 Year
  Sex: Male

DRUGS (1)
  1. COUMADIN [Suspect]
     Dates: end: 20100601

REACTIONS (2)
  - HAEMOPTYSIS [None]
  - ACUTE RESPIRATORY FAILURE [None]
